FAERS Safety Report 4635819-5 (Version None)
Quarter: 2005Q2

REPORT INFORMATION
  Report Type: 
  Country: None (occurrence: None)
  Receive Date: 20050415
  Receipt Date: 20050405
  Transmission Date: 20051028
  Serious: Yes (Hospitalization, Other)
  Sender: FDA-Public Use
  Company Number: JP-JNJFOC-20050102776

PATIENT
  Sex: Female
  Weight: 58 kg

DRUGS (18)
  1. REMICADE [Suspect]
  2. REMICADE [Suspect]
  3. REMICADE [Suspect]
  4. REMICADE [Suspect]
     Indication: RHEUMATOID ARTHRITIS
  5. RHEUMATREX [Suspect]
     Indication: RHEUMATOID ARTHRITIS
     Route: 049
  6. PREDNISOLONE [Suspect]
     Indication: RHEUMATOID ARTHRITIS
     Route: 049
  7. MOBIC [Concomitant]
     Indication: RHEUMATOID ARTHRITIS
     Route: 049
  8. VOLTAREN [Concomitant]
     Indication: RHEUMATOID ARTHRITIS
     Route: 049
  9. ADOFEED [Concomitant]
     Indication: RHEUMATOID ARTHRITIS
  10. BONALON [Concomitant]
     Route: 049
  11. TAKEPRON [Concomitant]
     Route: 049
  12. CYTOTEC [Concomitant]
     Route: 049
  13. SERENAL [Concomitant]
     Route: 049
  14. CONIEL [Concomitant]
     Route: 049
  15. PENFILL R [Concomitant]
     Dosage: 25 UNITS DAILY
     Route: 058
  16. PENFILL 30R [Concomitant]
     Dosage: 10 UNITS DAILY
     Route: 058
  17. INH [Concomitant]
     Indication: TUBERCULOSIS PROPHYLAXIS
  18. KETOPROFEN [Concomitant]
     Dosage: ^10X14^ EXTERNALLY PRN

REACTIONS (2)
  - HERPES SIMPLEX [None]
  - PYELONEPHRITIS [None]
